FAERS Safety Report 9180820 (Version 2)
Quarter: 2013Q2

REPORT INFORMATION
  Report Type: Spontaneous
  Country: US (occurrence: None)
  Receive Date: 20120611
  Receipt Date: 20120913
  Transmission Date: 20140414
  Serious: Yes (Other)
  Sender: FDA-Public Use
  Company Number: PHEH2012US004466

PATIENT
  Age: 41 Year
  Sex: Female

DRUGS (3)
  1. EXTAVIA [Suspect]
     Indication: MULTIPLE SCLEROSIS
     Dosage: .25 MG, QOD, SUBCULTANEOUS
     Route: 058
     Dates: start: 20111222
  2. LYRICA (PREGABALIN) [Concomitant]
  3. ELAVIL (AMITRIPTYLINE HYDROCHLORIDE) [Concomitant]

REACTIONS (22)
  - Multiple sclerosis relapse [None]
  - Feeling abnormal [None]
  - Pain of skin [None]
  - Sleep disorder [None]
  - Memory impairment [None]
  - Pain in extremity [None]
  - Feeling hot [None]
  - Injection site reaction [None]
  - Chills [None]
  - Arthralgia [None]
  - Skin discolouration [None]
  - Injection site pain [None]
  - Injection site erythema [None]
  - Influenza like illness [None]
  - Malaise [None]
  - Headache [None]
  - Gait disturbance [None]
  - Pain [None]
  - Erythema [None]
  - Feeling of body temperature change [None]
  - Insomnia [None]
  - Pyrexia [None]
